FAERS Safety Report 7516921-7 (Version None)
Quarter: 2011Q2

REPORT INFORMATION
  Report Type: 
  Country: None (occurrence: None)
  Receive Date: 20110526
  Receipt Date: 20110526
  Transmission Date: 20111010
  Serious: Yes (Other)
  Sender: FDA-Public Use
  Company Number: None

PATIENT
  Age: 47 Year
  Sex: Female
  Weight: 72.5755 kg

DRUGS (1)
  1. LYRICA [Suspect]
     Indication: MUSCULOSKELETAL PAIN
     Dosage: 1 CAPSULE TWO DAILY PO
     Route: 048
     Dates: start: 20080201, end: 20101015

REACTIONS (6)
  - DISTURBANCE IN ATTENTION [None]
  - VOMITING [None]
  - MENOPAUSAL SYMPTOMS [None]
  - DISTURBANCE IN SOCIAL BEHAVIOUR [None]
  - MEMORY IMPAIRMENT [None]
  - FEELING ABNORMAL [None]
